FAERS Safety Report 19764747 (Version 8)
Quarter: 2022Q1

REPORT INFORMATION
  Report Type: Spontaneous
  Country: US (occurrence: US)
  Receive Date: 20210830
  Receipt Date: 20220304
  Transmission Date: 20220423
  Serious: Yes (Hospitalization, Other)
  Sender: FDA-Public Use
  Company Number: US-BOEHRINGERINGELHEIM-2021-BI-124118

PATIENT
  Age: 47 Year
  Sex: Male
  Weight: 111.1 kg

DRUGS (25)
  1. SYNJARDY [Suspect]
     Active Substance: EMPAGLIFLOZIN\METFORMIN HYDROCHLORIDE
     Indication: Type 2 diabetes mellitus
     Dosage: 12.5-1,000 MG
     Route: 048
     Dates: start: 20161103, end: 201712
  2. SYNJARDY [Suspect]
     Active Substance: EMPAGLIFLOZIN\METFORMIN HYDROCHLORIDE
     Dosage: 12.5-1,000 MG
     Route: 048
     Dates: end: 20180401
  3. JARDIANCE [Suspect]
     Active Substance: EMPAGLIFLOZIN
     Indication: Type 2 diabetes mellitus
     Dosage: QAM
     Route: 048
     Dates: start: 20170901, end: 201804
  4. ASPIRIN [Concomitant]
     Active Substance: ASPIRIN
     Indication: Product used for unknown indication
     Route: 048
     Dates: start: 20160624, end: 20180413
  5. ASPIRIN [Concomitant]
     Active Substance: ASPIRIN
     Dosage: EC TABLET
     Route: 048
  6. LOFIBRA [Concomitant]
     Active Substance: FENOFIBRATE
     Indication: Hyperlipidaemia
     Route: 048
     Dates: start: 20160905, end: 20180427
  7. HYDROCHLOROTHIAZIDE\LISINOPRIL [Concomitant]
     Active Substance: HYDROCHLOROTHIAZIDE\LISINOPRIL
     Indication: Hypertension
     Dosage: 12.5MG- 10 MG
     Route: 048
     Dates: start: 20170530, end: 20180417
  8. LIPITOR [Concomitant]
     Active Substance: ATORVASTATIN CALCIUM
     Indication: Product used for unknown indication
     Dosage: AT NIGHT
     Route: 048
  9. LEVOFLOXACIN [Concomitant]
     Active Substance: LEVOFLOXACIN
     Indication: Product used for unknown indication
     Route: 048
     Dates: start: 20180417, end: 20180424
  10. TRAMADOL [Concomitant]
     Active Substance: TRAMADOL
     Indication: Pain
     Route: 048
     Dates: start: 20180417, end: 20180420
  11. AMBIEN [Concomitant]
     Active Substance: ZOLPIDEM TARTRATE
     Indication: Sleep disorder
     Route: 048
  12. METOPROLOL SUCCINATE [Concomitant]
     Active Substance: METOPROLOL SUCCINATE
     Indication: Hypertension
     Route: 048
     Dates: start: 20160813, end: 20180417
  13. VICTOZA [Concomitant]
     Active Substance: LIRAGLUTIDE
     Indication: Product used for unknown indication
     Dosage: 0.6 MG/0.1 ML (18 MG/3 ML) PNIJ?INJECT 1.8 MG INTO THE SKIN DAILY.
     Route: 058
     Dates: start: 20180409
  14. NORCO [Concomitant]
     Active Substance: ACETAMINOPHEN\HYDROCODONE BITARTRATE
     Indication: Product used for unknown indication
     Dosage: 325 MG-5 MG ORAL TABLET Q6 HRS AS NEEDED
     Route: 048
     Dates: start: 20180409
  15. APRESOLINE HYDROCHLORIDE [Concomitant]
     Active Substance: HYDRALAZINE HYDROCHLORIDE
     Indication: Product used for unknown indication
     Route: 048
     Dates: start: 20180417, end: 20180417
  16. NOVOLOG [Concomitant]
     Active Substance: INSULIN ASPART
     Indication: Product used for unknown indication
     Dosage: 100 UNITS/ML INJECTABLE SOLUTION
  17. LANTUS [Concomitant]
     Active Substance: INSULIN GLARGINE
     Indication: Glycosylated haemoglobin
     Dosage: 100 UNIT/ML (3 ML) PEN SUBCUTANEOUS SOLUTION?INJECT 20 UNITS INTO THE SKIN NIGHTLY
     Route: 058
     Dates: start: 20170501, end: 20180417
  18. LASIX [Concomitant]
     Active Substance: FUROSEMIDE
     Indication: Product used for unknown indication
     Route: 048
     Dates: start: 20160905, end: 20180417
  19. LEVOCETIRIZINE (XYZAL) [Concomitant]
     Indication: Product used for unknown indication
     Route: 048
     Dates: start: 20170612, end: 20180414
  20. AUGMENTIN [Concomitant]
     Active Substance: AMOXICILLIN\CLAVULANATE POTASSIUM
     Indication: Product used for unknown indication
     Dosage: 875-125MG TAB TWICE DAILY
     Route: 048
     Dates: start: 20170613, end: 20180417
  21. LOPRESSOR [Concomitant]
     Active Substance: METOPROLOL TARTRATE
     Indication: Product used for unknown indication
     Route: 048
     Dates: end: 20180417
  22. GLUCOPHAGE [Concomitant]
     Active Substance: METFORMIN HYDROCHLORIDE
     Indication: Product used for unknown indication
     Route: 048
     Dates: start: 20160813, end: 20180413
  23. NORVASC [Concomitant]
     Active Substance: AMLODIPINE BESYLATE
     Indication: Product used for unknown indication
     Route: 048
     Dates: start: 20180417, end: 20180418
  24. ZYRTEC [Concomitant]
     Active Substance: CETIRIZINE HYDROCHLORIDE
     Indication: Product used for unknown indication
     Route: 048
     Dates: start: 20180401, end: 20180401
  25. Lisinopril (ZESTRIL,PRINIVIL) [Concomitant]
     Indication: Product used for unknown indication
     Route: 048
     Dates: start: 20180409

REACTIONS (2)
  - Fournier^s gangrene [Unknown]
  - Diarrhoea [Unknown]

NARRATIVE: CASE EVENT DATE: 20180404
